FAERS Safety Report 18526451 (Version 1)
Quarter: 2020Q4

REPORT INFORMATION
  Report Type: Spontaneous
  Country: GB (occurrence: GB)
  Receive Date: 20201120
  Receipt Date: 20201120
  Transmission Date: 20210114
  Serious: Yes (Other)
  Sender: FDA-Public Use
  Company Number: GB-PFIZER INC-2020453929

PATIENT

DRUGS (2)
  1. CICLOSPORIN [Interacting]
     Active Substance: CYCLOSPORINE
     Dosage: UNK
  2. CIPROFLOXACIN HCL [Suspect]
     Active Substance: CIPROFLOXACIN HYDROCHLORIDE
     Dosage: UNK

REACTIONS (3)
  - Acute kidney injury [Unknown]
  - Nephropathy toxic [Unknown]
  - Drug interaction [Unknown]
